FAERS Safety Report 13010370 (Version 3)
Quarter: 2016Q4

REPORT INFORMATION
  Report Type: Spontaneous
  Country: US (occurrence: US)
  Receive Date: 20161208
  Receipt Date: 20161229
  Transmission Date: 20170207
  Serious: No
  Sender: FDA-Public Use
  Company Number: US-PFIZER INC-2016569964

PATIENT
  Age: 71 Year
  Sex: Male
  Weight: 100 kg

DRUGS (4)
  1. AMIODARONE HCL [Suspect]
     Active Substance: AMIODARONE HYDROCHLORIDE
     Indication: ATRIAL FIBRILLATION
  2. ENBREL [Interacting]
     Active Substance: ETANERCEPT
  3. METOPROLOL TARTRATE. [Suspect]
     Active Substance: METOPROLOL TARTRATE
     Indication: ATRIAL FIBRILLATION
  4. LYRICA [Suspect]
     Active Substance: PREGABALIN
     Indication: NEURALGIA
     Dosage: 50 MG, 2X/DAY
     Route: 048

REACTIONS (4)
  - Condition aggravated [Unknown]
  - Drug interaction [Unknown]
  - Feeling drunk [Recovered/Resolved]
  - Hypoacusis [Unknown]
